FAERS Safety Report 15338274 (Version 1)
Quarter: 2018Q3

REPORT INFORMATION
  Report Type: Spontaneous
  Country: JP (occurrence: JP)
  Receive Date: 20180831
  Receipt Date: 20180831
  Transmission Date: 20181010
  Serious: Yes (Death)
  Sender: FDA-Public Use
  Company Number: JP-FRESENIUS KABI-FK201809231

PATIENT
  Age: 43 Year
  Sex: Male

DRUGS (3)
  1. THIAMINE (MANUFACTURER UNKNOWN) [Suspect]
     Active Substance: THIAMINE
     Indication: VITAMIN SUPPLEMENTATION
     Route: 042
  2. FOLIC ACID. [Suspect]
     Active Substance: FOLIC ACID
     Indication: VITAMIN SUPPLEMENTATION
     Route: 048
  3. CYANOCOBALAMIN. [Concomitant]
     Active Substance: CYANOCOBALAMIN
     Indication: VITAMIN SUPPLEMENTATION
     Route: 042

REACTIONS (2)
  - Peripheral T-cell lymphoma unspecified [Fatal]
  - Malignant neoplasm progression [Fatal]
